FAERS Safety Report 7299804-X (Version None)
Quarter: 2011Q1

REPORT INFORMATION
  Report Type: 
  Country: None (occurrence: None)
  Receive Date: 20110217
  Receipt Date: 20110208
  Transmission Date: 20110831
  Serious: Yes (Hospitalization, Other)
  Sender: FDA-Public Use
  Company Number: US-ASTRAZENECA-2010SE21479

PATIENT
  Age: 67 Year
  Sex: Female
  Weight: 86.2 kg

DRUGS (16)
  1. SEROQUEL [Suspect]
     Route: 048
     Dates: start: 20100601, end: 20100101
  2. SEROQUEL [Suspect]
     Route: 048
  3. SEROQUEL [Suspect]
     Route: 048
  4. METHOCARBAMOL [Concomitant]
     Indication: PAIN
  5. CITALOPRAM [Concomitant]
     Indication: DEPRESSION
  6. BLOOD PRESSURE MED [Concomitant]
     Indication: HYPERTENSION
  7. SEROQUEL [Suspect]
     Indication: ANTIDEPRESSANT THERAPY
     Route: 048
     Dates: start: 20090101, end: 20100601
  8. SEROQUEL [Suspect]
     Route: 048
     Dates: start: 20100601, end: 20100101
  9. SEROQUEL [Suspect]
     Route: 048
  10. CLONAZEPAM [Concomitant]
     Indication: ANXIETY
  11. HYDROCODONE [Concomitant]
     Indication: PAIN
  12. SEROQUEL [Suspect]
     Indication: SLEEP DISORDER
     Route: 048
     Dates: start: 20090101, end: 20100601
  13. ROBAXIN [Concomitant]
     Indication: MUSCLE SPASMS
  14. SEROQUEL [Suspect]
     Indication: ANXIETY
     Route: 048
     Dates: start: 20090101, end: 20100601
  15. ATIVAN [Concomitant]
     Indication: ANXIETY
  16. SEROQUEL [Suspect]
     Route: 048
     Dates: start: 20100601, end: 20100101

REACTIONS (13)
  - CEREBRAL HAEMORRHAGE [None]
  - DRUG DOSE OMISSION [None]
  - SURGERY [None]
  - TREMOR [None]
  - NERVOUSNESS [None]
  - INSOMNIA [None]
  - SOMNOLENCE [None]
  - FATIGUE [None]
  - ABNORMAL DREAMS [None]
  - POOR QUALITY SLEEP [None]
  - RENAL FAILURE ACUTE [None]
  - DIZZINESS [None]
  - MIDDLE INSOMNIA [None]
